FAERS Safety Report 10925987 (Version 1)
Quarter: 2015Q1

REPORT INFORMATION
  Report Type: Spontaneous
  Country: CN (occurrence: CN)
  Receive Date: 20150318
  Receipt Date: 20150318
  Transmission Date: 20150721
  Serious: Yes (Hospitalization, Other)
  Sender: FDA-Public Use
  Company Number: CN-GLAXOSMITHKLINE-CN2015GSK033242

PATIENT
  Sex: Female

DRUGS (4)
  1. AMBROXOL SOLUTION [Suspect]
     Active Substance: AMBROXOL
     Indication: ASTHMA
     Dosage: 10 ML, TID
     Route: 048
  2. AMINOPHYLLINE TABLETS [Suspect]
     Active Substance: AMINOPHYLLINE
     Indication: ASTHMA
     Dosage: 2 UNK, TID
     Route: 048
  3. VENTOLIN [Suspect]
     Active Substance: ALBUTEROL SULFATE
     Indication: ASTHMA
     Dosage: UNK
     Route: 055
     Dates: start: 2012
  4. SERETIDE [Suspect]
     Active Substance: FLUTICASONE FUROATE\SALMETEROL XINAFOATE
     Indication: ASTHMA
     Dosage: 1 PUFF(S), BID
     Route: 055
     Dates: start: 2012

REACTIONS (7)
  - Cardiac failure [Recovered/Resolved]
  - Cough [Not Recovered/Not Resolved]
  - Overdose [Unknown]
  - Dyspnoea [Recovered/Resolved]
  - Asthma [Recovered/Resolved]
  - Asthenia [Not Recovered/Not Resolved]
  - Nasopharyngitis [Recovered/Resolved]

NARRATIVE: CASE EVENT DATE: 201411
